FAERS Safety Report 17306234 (Version 1)
Quarter: 2020Q1

REPORT INFORMATION
  Report Type: Spontaneous
  Country: US (occurrence: US)
  Receive Date: 20200123
  Receipt Date: 20200123
  Transmission Date: 20200409
  Serious: No
  Sender: FDA-Public Use
  Company Number: US-US WORLDMEDS, LLC-USW201902-000379

PATIENT
  Sex: Female

DRUGS (5)
  1. BOTULINUM TOXIN TYPE A [Suspect]
     Active Substance: BOTULINUM TOXIN TYPE A
     Indication: TORTICOLLIS
     Route: 030
     Dates: start: 1997, end: 2003
  2. TRIHEXYPHENIDYL [Concomitant]
     Active Substance: TRIHEXYPHENIDYL
  3. MYOBLOC [Suspect]
     Active Substance: RIMABOTULINUMTOXINB
     Indication: TORTICOLLIS
     Dates: start: 2003
  4. TETRABENAZINE. [Concomitant]
     Active Substance: TETRABENAZINE
  5. BACLOFEN. [Concomitant]
     Active Substance: BACLOFEN

REACTIONS (1)
  - Drug ineffective [Unknown]
